FAERS Safety Report 5693106-0 (Version None)
Quarter: 2008Q2

REPORT INFORMATION
  Report Type: 
  Country: None (occurrence: None)
  Receive Date: 20080402
  Receipt Date: 20080402
  Transmission Date: 20081010
  Serious: Yes (Other)
  Sender: FDA-Public Use
  Company Number: None

PATIENT
  Age: 6 Year
  Sex: Male
  Weight: 24.4942 kg

DRUGS (1)
  1. SINGULAIR [Suspect]
     Indication: ASTHMA
     Dosage: 1 DAILY PO
     Route: 048
     Dates: start: 20070401, end: 20071031

REACTIONS (6)
  - ABNORMAL BEHAVIOUR [None]
  - ANGER [None]
  - EMOTIONAL DISORDER [None]
  - MOOD ALTERED [None]
  - SCRATCH [None]
  - SELF INJURIOUS BEHAVIOUR [None]
